FAERS Safety Report 10730455 (Version 1)
Quarter: 2015Q1

REPORT INFORMATION
  Report Type: Spontaneous
  Country: US (occurrence: None)
  Receive Date: 20150120
  Receipt Date: 20150120
  Transmission Date: 20150721
  Serious: Yes (Disabling)
  Sender: FDA-Public Use
  Company Number: None

PATIENT
  Age: 21 Year
  Sex: Male
  Weight: 81.65 kg

DRUGS (1)
  1. RISPERIDONE. [Suspect]
     Active Substance: RISPERIDONE
     Indication: BIPOLAR I DISORDER
     Dosage: 1 TABLET
     Route: 048
     Dates: start: 20140707, end: 20140806

REACTIONS (2)
  - Ejaculation disorder [None]
  - Erectile dysfunction [None]

NARRATIVE: CASE EVENT DATE: 20140707
